FAERS Safety Report 17650369 (Version 3)
Quarter: 2020Q2

REPORT INFORMATION
  Report Type: Spontaneous
  Country: BE (occurrence: BE)
  Receive Date: 20200409
  Receipt Date: 20200519
  Transmission Date: 20200713
  Serious: Yes (Death, Other)
  Sender: FDA-Public Use
  Company Number: BE-PFIZER INC-2020142845

PATIENT
  Sex: Female
  Weight: 56.6 kg

DRUGS (16)
  1. ACETYLCYSTEINE. [Concomitant]
     Active Substance: ACETYLCYSTEINE
     Dosage: 600 MG, 1X/DAY
     Route: 048
  2. EMCONCOR [Concomitant]
     Active Substance: BISOPROLOL FUMARATE
     Dosage: 2.5 MG, 1X/DAY
     Route: 048
  3. MEDROL [Concomitant]
     Active Substance: METHYLPREDNISOLONE
     Dosage: 8 MG, 1X/DAY
     Route: 048
  4. CALCIUM CARBONATE. [Concomitant]
     Active Substance: CALCIUM CARBONATE
     Dosage: 1000 MG, 1X/DAY
     Route: 048
  5. DUROGESIC [Concomitant]
     Active Substance: FENTANYL
     Dosage: 25 UG, CYCLIC (1 DAY OUT OF 3)
     Route: 048
  6. IBRANCE [Suspect]
     Active Substance: PALBOCICLIB
     Indication: BREAST CANCER METASTATIC
     Dosage: 100 MG, 1X/DAY (WITH MEALS, SAME TIME, 3 WEEKS OUT OF 4)
     Route: 048
     Dates: start: 20190903
  7. DAFALGAN [Concomitant]
     Active Substance: ACETAMINOPHEN
     Dosage: 1 G, 1X/DAY (IN THE EVENING)
     Route: 048
  8. PANTOMED [Concomitant]
     Dosage: 40 MG, 1X/DAY
     Route: 048
  9. BURINEX [Concomitant]
     Active Substance: BUMETANIDE
     Dosage: 1 MG, 1X/DAY
     Route: 048
  10. FEMARA [Concomitant]
     Active Substance: LETROZOLE
     Dosage: 2.5 MG, 1X/DAY (CONTINUOUS)
     Route: 048
  11. LAXOBERON [Concomitant]
     Active Substance: SODIUM PICOSULFATE
     Dosage: 15 DROPS, 2X/DAY
     Route: 048
  12. OXYNORM [Concomitant]
     Active Substance: OXYCODONE HYDROCHLORIDE
     Dosage: 5 MG, 4X/DAY IF NECESSARY
     Route: 048
  13. XARELTO [Concomitant]
     Active Substance: RIVAROXABAN
     Dosage: 20 MG, 1X/DAY
     Route: 048
  14. CORDARONE [Concomitant]
     Active Substance: AMIODARONE HYDROCHLORIDE
     Dosage: 200 MG, 1X/DAY (5 DAYS A WEEK)
     Route: 048
  15. LITICAN [Concomitant]
     Active Substance: ALIZAPRIDE HYDROCHLORIDE
     Dosage: 50 MG, 3X/DAY IF NECESSARY
     Route: 048
  16. XGEVA [Concomitant]
     Active Substance: DENOSUMAB
     Dosage: 1 DF, MONTHLY (DURATION: 4 MONTHS)
     Route: 058
     Dates: start: 20190820

REACTIONS (6)
  - Escherichia sepsis [Fatal]
  - Encephalopathy [Unknown]
  - Agitation [Unknown]
  - Irritability [Unknown]
  - Sepsis [Fatal]
  - Meningitis cryptococcal [Fatal]

NARRATIVE: CASE EVENT DATE: 20200204
